FAERS Safety Report 10383920 (Version 1)
Quarter: 2014Q3

REPORT INFORMATION
  Report Type: Spontaneous
  Country: US (occurrence: None)
  Receive Date: 20140813
  Receipt Date: 20140813
  Transmission Date: 20150326
  Serious: Yes (Hospitalization)
  Sender: FDA-Public Use
  Company Number: None

PATIENT
  Age: 86 Year
  Sex: Male
  Weight: 72 kg

DRUGS (1)
  1. COUMADIN [Suspect]
     Active Substance: WARFARIN SODIUM
     Indication: THROMBOSIS PROPHYLAXIS
     Dosage: 2.5 MG DAILY X 5 MG MWF
     Route: 048
     Dates: start: 20120202, end: 20140808

REACTIONS (1)
  - Scrotal haematoma [None]

NARRATIVE: CASE EVENT DATE: 20140731
